FAERS Safety Report 4349008-5 (Version None)
Quarter: 2004Q2

REPORT INFORMATION
  Report Type: 
  Country: None (occurrence: None)
  Receive Date: 20040426
  Receipt Date: 20040426
  Transmission Date: 20050107
  Serious: Yes (Other)
  Sender: FDA-Public Use
  Company Number: None

PATIENT
  Sex: Female

DRUGS (2)
  1. METFORMIN HYDROCHLORIDE EXTENDED RELEASE [Suspect]
     Indication: DIABETES MELLITUS
     Dosage: 1 TAB BY MOUTH 3 TIMES A DAY.
     Route: 048
     Dates: start: 20040120
  2. AMARYL [Suspect]

REACTIONS (2)
  - BLOOD GLUCOSE FLUCTUATION [None]
  - PHARMACEUTICAL PRODUCT COMPLAINT [None]
